FAERS Safety Report 20573472 (Version 1)
Quarter: 2022Q1

REPORT INFORMATION
  Report Type: Spontaneous
  Country: US (occurrence: None)
  Receive Date: 20220309
  Receipt Date: 20220309
  Transmission Date: 20220424
  Serious: Yes (unspecified)
  Sender: FDA-Public Use
  Company Number: None

PATIENT
  Sex: Female

DRUGS (1)
  1. CILGAVIMAB\TIXAGEVIMAB [Suspect]
     Active Substance: CILGAVIMAB\TIXAGEVIMAB
     Indication: Drug intolerance
     Dosage: OTHER FREQUENCY : ONCE;?
     Route: 030

REACTIONS (3)
  - Dyspnoea [None]
  - Cough [None]
  - Chest discomfort [None]

NARRATIVE: CASE EVENT DATE: 20220210
